FAERS Safety Report 12079115 (Version 1)
Quarter: 2016Q1

REPORT INFORMATION
  Report Type: Spontaneous
  Country: DE (occurrence: DE)
  Receive Date: 20160216
  Receipt Date: 20160216
  Transmission Date: 20160526
  Serious: Yes (Hospitalization)
  Sender: FDA-Public Use
  Company Number: DE-009507513-1602DEU006054

PATIENT
  Age: 47 Year
  Sex: Male

DRUGS (3)
  1. TIOBLIS 10 MG/10 MG [Suspect]
     Active Substance: ATORVASTATIN\EZETIMIBE
     Indication: HYPERLIPIDAEMIA
     Dosage: 10/10 MG
     Route: 048
     Dates: start: 20151021
  2. TIOBLIS 10 MG/80 MG [Suspect]
     Active Substance: ATORVASTATIN\EZETIMIBE
     Indication: HYPERLIPIDAEMIA
     Dosage: 10/80 MG
     Route: 048
     Dates: end: 201601
  3. FENOFIBRATE. [Concomitant]
     Active Substance: FENOFIBRATE
     Dosage: UNK
     Dates: end: 20151020

REACTIONS (2)
  - Nausea [Recovered/Resolved]
  - Surgery [Unknown]

NARRATIVE: CASE EVENT DATE: 201510
